FAERS Safety Report 9342280 (Version 1)
Quarter: 2013Q2

REPORT INFORMATION
  Report Type: Spontaneous
  Country: US (occurrence: US)
  Receive Date: 20130611
  Receipt Date: 20130611
  Transmission Date: 20140414
  Serious: Yes (Congenital Anomaly, Other)
  Sender: FDA-Public Use
  Company Number: US-PFIZER INC-2013173767

PATIENT
  Sex: Male

DRUGS (16)
  1. ZOLOFT [Suspect]
     Dosage: UNK
     Route: 064
     Dates: start: 201003, end: 201005
  2. SERTRALINE HCL [Suspect]
     Dosage: UNK
     Route: 064
     Dates: start: 201003, end: 201005
  3. PAROXETINE [Concomitant]
     Dosage: UNK
     Route: 064
  4. ALPRAZOLAM [Concomitant]
     Dosage: UNK
     Route: 064
  5. CARISOPRODOL [Concomitant]
     Dosage: UNK
     Route: 064
  6. ENDOCET [Concomitant]
     Dosage: UNK
     Route: 064
  7. LAMOTRIGINE [Concomitant]
     Dosage: UNK
     Route: 064
  8. PRENATE DHA [Concomitant]
     Dosage: UNK
     Route: 064
  9. ONDANSETRON HYDROCHLORIDE [Concomitant]
     Dosage: UNK
     Route: 064
  10. BUTALB-ACETAMIN-CAFF [Concomitant]
     Dosage: UNK
     Route: 064
  11. METRONIDAZOLE [Concomitant]
     Dosage: UNK
     Route: 064
  12. TOBRAMYCIN [Concomitant]
     Dosage: UNK
     Route: 064
  13. ABILIFY [Concomitant]
     Dosage: UNK
     Route: 064
  14. AMOXICILLIN [Concomitant]
     Dosage: UNK
     Route: 064
  15. OXYCODONE-ACETAMINOPHEN [Concomitant]
     Dosage: UNK
     Route: 064
  16. AMOX TR-K CLV [Concomitant]
     Dosage: UNK
     Route: 064

REACTIONS (6)
  - Maternal exposure during pregnancy [Unknown]
  - Double outlet right ventricle [Unknown]
  - Pulmonary artery atresia [Unknown]
  - Ventricular septal defect [Unknown]
  - Patent ductus arteriosus [Unknown]
  - Atrial septal defect [Unknown]
